FAERS Safety Report 4380754-3 (Version None)
Quarter: 2004Q2

REPORT INFORMATION
  Report Type: 
  Country: None (occurrence: None)
  Receive Date: 20040614
  Receipt Date: 20040528
  Transmission Date: 20050107
  Serious: Yes (Hospitalization)
  Sender: FDA-Public Use
  Company Number: S04-USA-00021-01

PATIENT
  Age: 41 Year
  Sex: Male

DRUGS (5)
  1. LEXAPRO [Suspect]
     Indication: DEPRESSION
     Dosage: 10 MG BID PO
     Route: 048
     Dates: start: 20031221, end: 20031225
  2. LEXAPRO [Suspect]
     Indication: DEPRESSION
     Dates: start: 20031218, end: 20031220
  3. BUSPAR [Concomitant]
  4. SEROQUEL [Concomitant]
  5. PAXIL [Concomitant]

REACTIONS (12)
  - ANGER [None]
  - BRUXISM [None]
  - DEPRESSION [None]
  - DIARRHOEA [None]
  - HEADACHE [None]
  - HYPERHIDROSIS [None]
  - HYPERPHAGIA [None]
  - INSOMNIA [None]
  - PAIN [None]
  - RESTLESSNESS [None]
  - SOMNOLENCE [None]
  - SUICIDAL IDEATION [None]
